FAERS Safety Report 24042455 (Version 4)
Quarter: 2024Q4

REPORT INFORMATION
  Report Type: Spontaneous
  Country: US (occurrence: US)
  Receive Date: 20240702
  Receipt Date: 20241119
  Transmission Date: 20250115
  Serious: Yes (Other)
  Sender: PFIZER
  Company Number: US-PFIZER INC-202400204472

PATIENT
  Age: 81 Year
  Sex: Female
  Weight: 57.15 kg

DRUGS (2)
  1. IBRANCE [Suspect]
     Active Substance: PALBOCICLIB
     Indication: Breast cancer female
     Dosage: 1 A DAY
  2. IBRANCE [Suspect]
     Active Substance: PALBOCICLIB
     Indication: Lung neoplasm malignant
     Dosage: 100 MG

REACTIONS (11)
  - Paralysis [Unknown]
  - Illness [Recovered/Resolved]
  - Somnolence [Unknown]
  - Dysstasia [Unknown]
  - Disturbance in attention [Unknown]
  - Dyspnoea [Unknown]
  - Limb discomfort [Unknown]
  - Fear of falling [Recovered/Resolved]
  - Musculoskeletal disorder [Unknown]
  - White blood cell count decreased [Unknown]
  - Asthenia [Unknown]

NARRATIVE: CASE EVENT DATE: 20240722
